FAERS Safety Report 18147567 (Version 1)
Quarter: 2020Q3

REPORT INFORMATION
  Report Type: Spontaneous
  Country: ES (occurrence: ES)
  Receive Date: 20200814
  Receipt Date: 20200814
  Transmission Date: 20201103
  Serious: Yes (Hospitalization, Other)
  Sender: FDA-Public Use
  Company Number: ES-AUROBINDO-AUR-APL-2020-038696

PATIENT
  Age: 56 Year
  Sex: Female

DRUGS (3)
  1. LORAZEPAM. [Interacting]
     Active Substance: LORAZEPAM
     Indication: PRODUCT USED FOR UNKNOWN INDICATION
     Dosage: 10 DOSAGE FORM (1 MG OF 10 DOSAGES FORMS IN TOTAL)
     Route: 048
     Dates: start: 20200331, end: 20200331
  2. RIVOTRIL [Interacting]
     Active Substance: CLONAZEPAM
     Indication: PRODUCT USED FOR UNKNOWN INDICATION
     Dosage: 3.5 MILLIGRAM (7 CPS, IN 1 TOTAL )
     Route: 048
     Dates: start: 20200331, end: 20200331
  3. DULOXETINE GASTRO?RESISTANT CAPSULES [Suspect]
     Active Substance: DULOXETINE
     Indication: PRODUCT USED FOR UNKNOWN INDICATION
     Dosage: 12 DOSAGE FORM  (90 MG, 12 DOSAGE FORM IN  1 TOTAL)
     Route: 048
     Dates: start: 20200331, end: 20200331

REACTIONS (4)
  - Acute kidney injury [Recovered/Resolved]
  - Pneumonia aspiration [Recovered/Resolved]
  - Depressed level of consciousness [Recovered/Resolved]
  - Rhabdomyolysis [Recovered/Resolved]

NARRATIVE: CASE EVENT DATE: 20200331
